FAERS Safety Report 9056160 (Version 2)
Quarter: 2013Q1

REPORT INFORMATION
  Report Type: Spontaneous
  Country: JP (occurrence: JP)
  Receive Date: 20130205
  Receipt Date: 20130227
  Transmission Date: 20140127
  Serious: Yes (Hospitalization)
  Sender: FDA-Public Use
  Company Number: JP-PFIZER INC-2013047361

PATIENT
  Age: 22 Month
  Sex: Female

DRUGS (1)
  1. CHAMPIX [Suspect]
     Dosage: 1 MG, SINGLE
     Route: 048
     Dates: start: 20130203, end: 20130203

REACTIONS (4)
  - Accidental exposure to product by child [Recovered/Resolved]
  - Feeling abnormal [Recovered/Resolved]
  - Vomiting [Recovered/Resolved]
  - Altered state of consciousness [Recovered/Resolved]
